FAERS Safety Report 7914547-4 (Version None)
Quarter: 2011Q4

REPORT INFORMATION
  Report Type: 
  Country: None (occurrence: None)
  Receive Date: 20111110
  Receipt Date: 20111026
  Transmission Date: 20120403
  Serious: Yes (Other)
  Sender: FDA-Public Use
  Company Number: TCI2011A05739

PATIENT
  Age: 53 Year
  Sex: Male

DRUGS (7)
  1. DRUG USED IN DIABETES [Concomitant]
  2. ANGIOTENSIN II ANTAGONISTS [Concomitant]
  3. ACTOS [Suspect]
     Indication: TYPE 2 DIABETES MELLITUS
     Dosage: 15 MG (15 MG, 1 D) PER ORAL
     Route: 048
     Dates: start: 20090709, end: 20110617
  4. SULFONAMIDES, UREA DERIVATIVES [Concomitant]
  5. BIGUANIDES [Concomitant]
  6. HMG COA REDUCTASE INHIBITORS [Concomitant]
  7. ALPHA GLUCOSIDASE INHIBITORS [Concomitant]

REACTIONS (1)
  - BLADDER CANCER [None]
